FAERS Safety Report 4330774-X (Version None)
Quarter: 2004Q1

REPORT INFORMATION
  Report Type: 
  Country: None (occurrence: None)
  Receive Date: 20040331
  Receipt Date: 20040317
  Transmission Date: 20041129
  Serious: Yes (Other)
  Sender: FDA-Public Use
  Company Number: US_0402100782

PATIENT
  Age: 56 Year
  Sex: Female
  Weight: 59 kg

DRUGS (3)
  1. HUMALOG [Suspect]
     Indication: DIABETES MELLITUS
     Dosage: 4 U/3 DAY
     Dates: start: 19980101
  2. HUMULIN N [Suspect]
     Indication: DIABETES MELLITUS
     Dosage: 42 U DAY
     Dates: start: 19980101
  3. HYZAAR [Concomitant]

REACTIONS (9)
  - ANKLE FRACTURE [None]
  - BLOOD GLUCOSE INCREASED [None]
  - HEPATITIS C [None]
  - HYPERTENSION [None]
  - HYPOTENSION [None]
  - MEDICATION ERROR [None]
  - MOBILITY DECREASED [None]
  - VISUAL ACUITY REDUCED [None]
  - WEIGHT INCREASED [None]
